FAERS Safety Report 25256724 (Version 1)
Quarter: 2025Q2

REPORT INFORMATION
  Report Type: Spontaneous
  Country: KR (occurrence: KR)
  Receive Date: 20250430
  Receipt Date: 20250430
  Transmission Date: 20250717
  Serious: Yes (Other)
  Sender: MERCK SHARP & DOHME LLC
  Company Number: KR-009507513-2274950

PATIENT
  Age: 50 Year
  Sex: Female

DRUGS (1)
  1. KEYTRUDA [Suspect]
     Active Substance: PEMBROLIZUMAB
     Indication: Breast cancer

REACTIONS (6)
  - Hepatotoxicity [Unknown]
  - Secondary adrenocortical insufficiency [Unknown]
  - Hypopituitarism [Unknown]
  - Erythema multiforme [Unknown]
  - Skin exfoliation [Unknown]
  - Hyperglycaemia [Unknown]

NARRATIVE: CASE EVENT DATE: 20240402
